FAERS Safety Report 4352809-0 (Version None)
Quarter: 2004Q2

REPORT INFORMATION
  Report Type: 
  Country: None (occurrence: None)
  Receive Date: 20040429
  Receipt Date: 20040414
  Transmission Date: 20050107
  Serious: Yes (Other)
  Sender: FDA-Public Use
  Company Number: 194522

PATIENT
  Sex: Female

DRUGS (1)
  1. AVONEX [Suspect]
     Indication: MULTIPLE SCLEROSIS
     Dosage: 30 MCG QW IM
     Route: 030

REACTIONS (5)
  - BURNING SENSATION [None]
  - DIABETES MELLITUS [None]
  - DIFFICULTY IN WALKING [None]
  - PARAESTHESIA [None]
  - PYREXIA [None]
